FAERS Safety Report 24784700 (Version 1)
Quarter: 2024Q4

REPORT INFORMATION
  Report Type: Spontaneous
  Country: US (occurrence: US)
  Receive Date: 20241227
  Receipt Date: 20241227
  Transmission Date: 20250114
  Serious: No
  Sender: CELLTRION
  Company Number: US-CELLTRION INC.-2024US018292

PATIENT

DRUGS (2)
  1. TRUXIMA [Suspect]
     Active Substance: RITUXIMAB-ABBS
     Indication: Pemphigus
     Dosage: UNK
     Dates: start: 20240619
  2. TRUXIMA [Suspect]
     Active Substance: RITUXIMAB-ABBS
     Dosage: UNK
     Dates: start: 20240703

REACTIONS (1)
  - Unevaluable event [Unknown]
